FAERS Safety Report 10529256 (Version 2)
Quarter: 2015Q1

REPORT INFORMATION
  Report Type: Report from Study
  Country: JP (occurrence: JP)
  Receive Date: 20141020
  Receipt Date: 20150109
  Transmission Date: 20150720
  Serious: Yes (Other)
  Sender: FDA-Public Use
  Company Number: PHHY2014JP135726

PATIENT
  Age: 66 Year
  Sex: Female
  Weight: 47 kg

DRUGS (5)
  1. NOVAMIN [Suspect]
     Active Substance: PROCHLORPERAZINE MALEATE
     Indication: MYOFASCIAL PAIN SYNDROME
     Dosage: 15 MG, QD
     Route: 048
     Dates: end: 20131115
  2. LYRICA [Concomitant]
     Active Substance: PREGABALIN
     Indication: MYOFASCIAL PAIN SYNDROME
     Dosage: 150 MG, UNK
     Route: 048
  3. INDACATEROL [Suspect]
     Active Substance: INDACATEROL
     Dosage: 150 UG, QD
     Route: 055
     Dates: start: 20131115, end: 20131206
  4. TRAMCET [Concomitant]
     Active Substance: ACETAMINOPHEN\TRAMADOL
     Indication: MYOFASCIAL PAIN SYNDROME
     Dosage: 4 DF, UNK
     Route: 048
  5. INDACATEROL [Suspect]
     Active Substance: INDACATEROL
     Indication: CHRONIC OBSTRUCTIVE PULMONARY DISEASE
     Dosage: 150 UG, QD
     Route: 055
     Dates: start: 20130808, end: 20131030

REACTIONS (1)
  - Electrocardiogram QT prolonged [Recovered/Resolved]

NARRATIVE: CASE EVENT DATE: 20131030
